FAERS Safety Report 4321871-3 (Version None)
Quarter: 2004Q1

REPORT INFORMATION
  Report Type: 
  Country: None (occurrence: None)
  Receive Date: 20040322
  Receipt Date: 20040116
  Transmission Date: 20041129
  Serious: No
  Sender: FDA-Public Use
  Company Number: A-US2003-03317

PATIENT
  Age: 77 Year
  Sex: Female
  Weight: 50.8 kg

DRUGS (8)
  1. TRACLEER [Suspect]
     Indication: PULMONARY HYPERTENSION
     Dosage: 62.5 MG, BID, ORAL
     Route: 048
     Dates: start: 20030701, end: 20030831
  2. COUMADIN [Suspect]
     Dosage: 1.5 MG, QD, UNK
     Dates: start: 20030701, end: 20030831
  3. ZOCOR [Concomitant]
  4. LISINOPRIL [Concomitant]
  5. SYNTHROID [Concomitant]
  6. ACETYLSALICYLIC ACID SRT [Concomitant]
  7. LASIX [Concomitant]
  8. AMBIEN [Concomitant]

REACTIONS (3)
  - DRUG INEFFECTIVE [None]
  - DYSPNOEA [None]
  - METABOLIC ACIDOSIS [None]
